FAERS Safety Report 17401115 (Version 1)
Quarter: 2020Q1

REPORT INFORMATION
  Report Type: Spontaneous
  Country: JP (occurrence: JP)
  Receive Date: 20200211
  Receipt Date: 20200211
  Transmission Date: 20200409
  Serious: Yes (Death, Hospitalization, Other)
  Sender: FDA-Public Use
  Company Number: JP-SA-2020SA034638

PATIENT
  Age: 73 Year
  Sex: Male
  Weight: 57 kg

DRUGS (15)
  1. LEVOFLOXACIN. [Suspect]
     Active Substance: LEVOFLOXACIN
     Indication: PRODUCT USED FOR UNKNOWN INDICATION
  2. ETHAMBUTOL [Concomitant]
     Active Substance: ETHAMBUTOL HYDROCHLORIDE
  3. RABEPRAZOLE [Concomitant]
     Active Substance: RABEPRAZOLE
  4. PREDNISOLONE. [Concomitant]
     Active Substance: PREDNISOLONE
  5. ITRACONAZOLE. [Concomitant]
     Active Substance: ITRACONAZOLE
  6. AMPHOTERICIN B, LIPOSOME [Concomitant]
     Active Substance: AMPHOTERICIN B
  7. METHYLPREDNISOLONE. [Concomitant]
     Active Substance: METHYLPREDNISOLONE
  8. VORICONAZOLE. [Concomitant]
     Active Substance: VORICONAZOLE
  9. AZOSEMIDE [Concomitant]
     Active Substance: AZOSEMIDE
  10. EPLERENONE. [Concomitant]
     Active Substance: EPLERENONE
  11. RIFADINE [Suspect]
     Active Substance: RIFAMPIN
     Indication: ATYPICAL MYCOBACTERIAL INFECTION
  12. BISOPROLOL FUMARATE. [Concomitant]
     Active Substance: BISOPROLOL FUMARATE
  13. CLARITHROMYCIN. [Concomitant]
     Active Substance: CLARITHROMYCIN
  14. CLOPIDOGREL [Concomitant]
     Active Substance: CLOPIDOGREL BISULFATE
  15. NICORANDIL [Concomitant]
     Active Substance: NICORANDIL

REACTIONS (4)
  - Cerebral infarction [Fatal]
  - Nephrotic syndrome [Unknown]
  - Aspergillus infection [Fatal]
  - Cerebral haemorrhage [Fatal]
